FAERS Safety Report 24697375 (Version 2)
Quarter: 2024Q4

REPORT INFORMATION
  Report Type: Spontaneous
  Country: JP (occurrence: JP)
  Receive Date: 20241204
  Receipt Date: 20241227
  Transmission Date: 20250115
  Serious: Yes (Death, Other)
  Sender: GILEAD
  Company Number: JP-GILEAD-2024-0695609

PATIENT
  Age: 49 Year
  Sex: Female

DRUGS (2)
  1. TRODELVY [Suspect]
     Active Substance: SACITUZUMAB GOVITECAN-HZIY
     Indication: Triple negative breast cancer
     Dosage: 5 MG/KG
     Route: 065
     Dates: start: 20241125, end: 20241125
  2. LANSOPRAZOLE [Concomitant]
     Active Substance: LANSOPRAZOLE

REACTIONS (6)
  - Death [Fatal]
  - Blood urea increased [Unknown]
  - Lymphocyte count decreased [Unknown]
  - Dizziness [Unknown]
  - Pruritus [Unknown]
  - Triple negative breast cancer [Unknown]

NARRATIVE: CASE EVENT DATE: 20241128
